FAERS Safety Report 11195640 (Version 1)
Quarter: 2015Q2

REPORT INFORMATION
  Report Type: Spontaneous
  Country: US (occurrence: US)
  Receive Date: 20150617
  Receipt Date: 20150617
  Transmission Date: 20150821
  Serious: No
  Sender: FDA-Public Use
  Company Number: US-PFIZER INC-2015199793

PATIENT
  Age: 66 Year
  Sex: Female
  Weight: 77 kg

DRUGS (10)
  1. RANITIDINE [Concomitant]
     Active Substance: RANITIDINE\RANITIDINE HYDROCHLORIDE
     Indication: HYPERSENSITIVITY
  2. NEXIUM [Concomitant]
     Active Substance: ESOMEPRAZOLE MAGNESIUM
     Indication: GASTROOESOPHAGEAL REFLUX DISEASE
     Dosage: 40 MG, 2X/DAY
     Route: 048
  3. PREMARIN [Suspect]
     Active Substance: ESTROGENS, CONJUGATED
     Dosage: 0.3 MG, DAILY
     Route: 048
  4. CETIRIZINE [Concomitant]
     Active Substance: CETIRIZINE HYDROCHLORIDE
     Dosage: 10 MG, DAILY
     Route: 048
  5. ARMOUR THYROID [Concomitant]
     Active Substance: THYROID, PORCINE\THYROID, UNSPECIFIED
     Indication: HYPOTHYROIDISM
     Dosage: 60 MG, DAILY
     Route: 048
  6. BUPROPION HCL XL 24 HR [Concomitant]
     Indication: ANXIETY
     Dosage: 300 MG, 1X/DAY
     Route: 048
  7. POLYETHYLENE GLYCOL [Concomitant]
     Active Substance: POLYETHYLENE GLYCOLS
     Dosage: 17 MG, 1X/DAY
  8. ISOSORB MONO ER [Concomitant]
     Indication: CARDIAC DISORDER
     Dosage: 30 MG, UNK
     Route: 048
  9. NIFEDICAL XL [Concomitant]
     Active Substance: NIFEDIPINE
     Indication: CARDIAC DISORDER
     Dosage: 30 MG, DAILY
     Route: 048
  10. RANITIDINE [Concomitant]
     Active Substance: RANITIDINE\RANITIDINE HYDROCHLORIDE
     Indication: GASTROOESOPHAGEAL REFLUX DISEASE
     Dosage: 600 MG, DAILY
     Route: 048

REACTIONS (2)
  - Urticaria [Not Recovered/Not Resolved]
  - Formication [Not Recovered/Not Resolved]

NARRATIVE: CASE EVENT DATE: 201506
